FAERS Safety Report 25637406 (Version 1)
Quarter: 2025Q3

REPORT INFORMATION
  Report Type: Report from Study
  Country: US (occurrence: US)
  Receive Date: 20250804
  Receipt Date: 20250804
  Transmission Date: 20251020
  Serious: Yes (Life-Threatening, Hospitalization)
  Sender: Unknown Manufacturer
  Company Number: US-MIRUM PHARMACEUTICALS, INC.-US-MIR-25-00518

PATIENT

DRUGS (2)
  1. LIVMARLI [Suspect]
     Active Substance: MARALIXIBAT CHLORIDE
     Indication: Alagille syndrome
     Dosage: 0.9 MILLILITER, QD
     Route: 065
     Dates: start: 202308, end: 202506
  2. LIVMARLI [Suspect]
     Active Substance: MARALIXIBAT CHLORIDE
     Route: 065
     Dates: start: 20250715

REACTIONS (5)
  - Sepsis [Unknown]
  - Jaundice [Recovered/Resolved]
  - Xanthoma [Unknown]
  - Pruritus [Recovering/Resolving]
  - Therapy interrupted [Unknown]

NARRATIVE: CASE EVENT DATE: 20250708
